FAERS Safety Report 6997091-0 (Version None)
Quarter: 2010Q3

REPORT INFORMATION
  Report Type: 
  Country: None (occurrence: None)
  Receive Date: 20100918
  Receipt Date: 20090902
  Transmission Date: 20110219
  Serious: No
  Sender: FDA-Public Use
  Company Number: US-WYE-H10815109

PATIENT
  Sex: Female

DRUGS (2)
  1. PRISTIQ [Suspect]
     Route: 048
     Dates: end: 20090101
  2. PRISTIQ [Suspect]
     Dosage: WEANED OFF
     Route: 048
     Dates: end: 20090101

REACTIONS (5)
  - CONSTIPATION [None]
  - DRUG WITHDRAWAL SYNDROME [None]
  - FATIGUE [None]
  - INSOMNIA [None]
  - PSYCHOMOTOR HYPERACTIVITY [None]
